FAERS Safety Report 22007944 (Version 1)
Quarter: 2023Q1

REPORT INFORMATION
  Report Type: Spontaneous
  Country: SK (occurrence: SK)
  Receive Date: 20230218
  Receipt Date: 20230218
  Transmission Date: 20230417
  Serious: Yes (Hospitalization, Other)
  Sender: FDA-Public Use
  Company Number: SK-ABBVIE-4311795

PATIENT
  Age: 16 Year
  Sex: Male
  Weight: 115 kg

DRUGS (4)
  1. ADALIMUMAB [Suspect]
     Active Substance: ADALIMUMAB
     Indication: Hidradenitis
     Route: 058
     Dates: start: 202011
  2. ISOTRETINOIN [Concomitant]
     Active Substance: ISOTRETINOIN
     Indication: Product used for unknown indication
     Dosage: 10 MILLIGRAM
     Dates: start: 202005
  3. ISOTRETINOIN [Concomitant]
     Active Substance: ISOTRETINOIN
     Indication: Product used for unknown indication
     Dates: start: 202003
  4. ISOTRETINOIN [Concomitant]
     Active Substance: ISOTRETINOIN
     Indication: Product used for unknown indication
     Dosage: 30 MILLIGRAM
     Dates: start: 202006

REACTIONS (10)
  - Suicidal ideation [Unknown]
  - Impaired healing [Unknown]
  - Wound [Unknown]
  - Muscle contracture [Unknown]
  - Hidradenitis [Unknown]
  - Excessive granulation tissue [Unknown]
  - Stenosis [Unknown]
  - Drug level below therapeutic [Unknown]
  - Wound haemorrhage [Unknown]
  - Wound complication [Unknown]

NARRATIVE: CASE EVENT DATE: 20210101
